APPROVED DRUG PRODUCT: NICARDIPINE HYDROCHLORIDE IN 0.9% SODIUM CHLORIDE
Active Ingredient: NICARDIPINE HYDROCHLORIDE
Strength: 40MG/200ML (0.2MG/ML)
Dosage Form/Route: INJECTABLE;INTRAVENOUS
Application: A215592 | Product #002 | TE Code: AP
Applicant: CIPLA LTD
Approved: Sep 24, 2024 | RLD: No | RS: No | Type: RX